FAERS Safety Report 22390149 (Version 4)
Quarter: 2023Q2

REPORT INFORMATION
  Report Type: Spontaneous
  Country: JO (occurrence: JO)
  Receive Date: 20230531
  Receipt Date: 20230613
  Transmission Date: 20230722
  Serious: Yes (Hospitalization, Other)
  Sender: FDA-Public Use
  Company Number: JO-MLMSERVICE-20230523-4302039-1

PATIENT
  Age: 75 Year
  Sex: Female

DRUGS (4)
  1. IRINOTECAN HYDROCHLORIDE [Suspect]
     Active Substance: IRINOTECAN HYDROCHLORIDE
     Indication: Ductal adenocarcinoma of pancreas
     Dosage: UNK, CYCLIC (MODIFIED FOLFIRINOX)
     Route: 042
  2. OXALIPLATIN [Suspect]
     Active Substance: OXALIPLATIN
     Indication: Ductal adenocarcinoma of pancreas
     Dosage: UNK, CYCLIC (MODIFIED FOLFIRINOX)
     Route: 042
  3. LEUCOVORIN CALCIUM [Suspect]
     Active Substance: LEUCOVORIN CALCIUM
     Indication: Ductal adenocarcinoma of pancreas
     Dosage: UNK, CYCLIC (MODIFIED FOLFIRINOX)
     Route: 042
  4. FLUOROURACIL [Suspect]
     Active Substance: FLUOROURACIL
     Indication: Ductal adenocarcinoma of pancreas
     Dosage: UNK, CYCLIC (MODIFIED FOLFIRINOX)
     Route: 042

REACTIONS (5)
  - Febrile neutropenia [Unknown]
  - Urosepsis [Unknown]
  - Dehydration [Unknown]
  - Diarrhoea [Unknown]
  - Off label use [Unknown]
